FAERS Safety Report 7532560-6 (Version None)
Quarter: 2011Q2

REPORT INFORMATION
  Report Type: 
  Country: None (occurrence: None)
  Receive Date: 20110608
  Receipt Date: 20110527
  Transmission Date: 20111010
  Serious: Yes (Hospitalization)
  Sender: FDA-Public Use
  Company Number: PHHY2011BR46279

PATIENT
  Sex: Female

DRUGS (1)
  1. RASILEZ [Suspect]
     Dosage: 300 MG, UNK
     Route: 048

REACTIONS (3)
  - DIABETES MELLITUS [None]
  - BLOOD PRESSURE INCREASED [None]
  - RESPIRATORY DISORDER [None]
